FAERS Safety Report 18524108 (Version 1)
Quarter: 2020Q4

REPORT INFORMATION
  Report Type: Spontaneous
  Country: FI (occurrence: FI)
  Receive Date: 20201119
  Receipt Date: 20201119
  Transmission Date: 20210114
  Serious: Yes (Hospitalization, Other)
  Sender: FDA-Public Use
  Company Number: FI-MYLANLABS-2020M1087911

PATIENT
  Sex: Male

DRUGS (18)
  1. LEPONEX [Suspect]
     Active Substance: CLOZAPINE
     Indication: SCHIZOPHRENIA
     Dosage: UNK
  2. LEPONEX [Suspect]
     Active Substance: CLOZAPINE
     Dosage: 100 MG AT 8 P.M.
     Dates: start: 20200929, end: 20200930
  3. LEPONEX [Suspect]
     Active Substance: CLOZAPINE
     Dosage: 50 MG AT 8 A.M. AND 200 MG AT 8 P.M.
     Dates: start: 20201010, end: 20201011
  4. LEPONEX [Suspect]
     Active Substance: CLOZAPINE
     Dosage: 50 MG AT 8 A.M. AND 225 MG AT 8 P.M.
     Dates: start: 20201012, end: 20201012
  5. LEPONEX 100 MG [Suspect]
     Active Substance: CLOZAPINE
     Indication: PRODUCT USED FOR UNKNOWN INDICATION
     Dosage: DOSE GRADUALLY INCREASED STARTING FROM DOSE OF 12.5 MG AND REACHED A DOSE OF 275 MG
     Dates: start: 20200923, end: 20201010
  6. XEPLION [Concomitant]
     Active Substance: PALIPERIDONE PALMITATE
     Dosage: 100 MILLIGRAM, QD
     Dates: end: 20200924
  7. LEPONEX [Suspect]
     Active Substance: CLOZAPINE
     Dosage: 25 MG AT 8 A.M. AND 150 MG AT 8 P.M.UNK
     Dates: start: 20201005, end: 20201006
  8. LEPONEX [Suspect]
     Active Substance: CLOZAPINE
     Dosage: 25 MG AT 8 P.M.
     Dates: start: 20200924, end: 20200924
  9. LEPONEX [Suspect]
     Active Substance: CLOZAPINE
     Dosage: 50 MG AT 8 A.M. AND 150 MG AT 8 P.M.
     Dates: start: 20201007, end: 20201008
  10. ZYPADHERA [Concomitant]
     Active Substance: OLANZAPINE PAMOATE
     Dosage: 405 MILLIGRAM, Q2W
     Dates: end: 20200910
  11. LEPONEX [Suspect]
     Active Substance: CLOZAPINE
     Dosage: 50 MG AT 8 A.M. AND 175 MG AT 8 P.M.
     Dates: start: 20201009, end: 20201009
  12. LEPONEX [Suspect]
     Active Substance: CLOZAPINE
     Dosage: 12.5 MG AT 8 P.M.
     Dates: start: 20200923, end: 20200923
  13. LEPONEX [Suspect]
     Active Substance: CLOZAPINE
     Dosage: 50 MG AT 8 P.M.
     Dates: start: 20200925, end: 20200926
  14. LEPONEX [Suspect]
     Active Substance: CLOZAPINE
     Dosage: 75 MG AT 8 P.M.
     Dates: start: 20200927, end: 20200928
  15. LEPONEX [Suspect]
     Active Substance: CLOZAPINE
     Dosage: 25 MG AT 8 A.M. AND 100 MG AT 8 P.M.
     Dates: start: 20201001, end: 20201002
  16. LEPONEX [Suspect]
     Active Substance: CLOZAPINE
     Dosage: 25 MG AT 8 A.M. AND 125 MG AT 8 P.M.UNK
     Dates: start: 20201003, end: 20201004
  17. LEPONEX [Suspect]
     Active Substance: CLOZAPINE
     Dosage: 50 MG AT 8 A.M.
     Dates: start: 20201013, end: 20201013
  18. LEPONEX 25 MG [Suspect]
     Active Substance: CLOZAPINE
     Indication: PRODUCT USED FOR UNKNOWN INDICATION
     Dosage: UNK
     Dates: start: 20200923, end: 20201010

REACTIONS (8)
  - Myocarditis [Unknown]
  - White blood cell count increased [Unknown]
  - Haemoglobin decreased [Unknown]
  - Eosinophil count increased [Recovering/Resolving]
  - C-reactive protein increased [Unknown]
  - Sinus tachycardia [Unknown]
  - Electrocardiogram ST segment elevation [Unknown]
  - Monocyte count increased [Recovering/Resolving]

NARRATIVE: CASE EVENT DATE: 2020
